FAERS Safety Report 4564842-4 (Version None)
Quarter: 2005Q1

REPORT INFORMATION
  Report Type: 
  Country: None (occurrence: None)
  Receive Date: 20050128
  Receipt Date: 20050125
  Transmission Date: 20050727
  Serious: Yes (Hospitalization)
  Sender: FDA-Public Use
  Company Number: SE-MERCK-0501SWE00027

PATIENT
  Age: 61 Year
  Sex: Female

DRUGS (4)
  1. VIOXX [Suspect]
     Indication: WHIPLASH INJURY
     Route: 048
     Dates: start: 20000329, end: 20000802
  2. AMITRIPTYLINE HYDROCHLORIDE [Concomitant]
     Route: 065
  3. ZOPICLONE [Concomitant]
     Route: 065
  4. IBUPROFEN [Concomitant]
     Route: 065

REACTIONS (1)
  - MYOCARDIAL INFARCTION [None]
